FAERS Safety Report 6198293-6 (Version None)
Quarter: 2009Q2

REPORT INFORMATION
  Report Type: 
  Country: None (occurrence: None)
  Receive Date: 20090519
  Receipt Date: 20090506
  Transmission Date: 20091009
  Serious: Yes (Hospitalization, Other)
  Sender: FDA-Public Use
  Company Number: SPV1-2009-00929

PATIENT
  Age: 12 Year
  Sex: Male
  Weight: 30 kg

DRUGS (9)
  1. ELAPRASE [Suspect]
     Indication: MUCOPOLYSACCHARIDOSIS II
     Dosage: 12 MG, 1X/WEEK, IV DRIP
     Route: 041
     Dates: start: 20080813, end: 20090218
  2. DOMPERIDONE (DOMPERIDONE) [Concomitant]
  3. MONTELUKAST SODIUM [Concomitant]
  4. ZINC GLUCONATE (ZINC GLUCONATE) [Concomitant]
  5. RANITIDINE [Concomitant]
  6. SALBUTAMOL (SALBUTAMOL) [Concomitant]
  7. BUDESONIDE [Concomitant]
  8. CARBAMAZEPINE [Concomitant]
  9. FLUTICASONE PROPIONATE [Concomitant]

REACTIONS (2)
  - AXILLARY VEIN THROMBOSIS [None]
  - PULMONARY EMBOLISM [None]
